FAERS Safety Report 6147551-X (Version None)
Quarter: 2009Q2

REPORT INFORMATION
  Report Type: 
  Country: None (occurrence: None)
  Receive Date: 20090408
  Receipt Date: 20090330
  Transmission Date: 20091009
  Serious: Yes (Other)
  Sender: FDA-Public Use
  Company Number: GB-ELI_LILLY_AND_COMPANY-GB200903007616

PATIENT
  Age: 34 Year
  Sex: Female

DRUGS (1)
  1. GEMZAR [Suspect]
     Indication: ADENOCARCINOMA PANCREAS

REACTIONS (1)
  - OVARIAN FAILURE [None]
